FAERS Safety Report 14248211 (Version 1)
Quarter: 2017Q4

REPORT INFORMATION
  Report Type: Spontaneous
  Country: US (occurrence: US)
  Receive Date: 20171204
  Receipt Date: 20171204
  Transmission Date: 20180321
  Serious: Yes (Life-Threatening, Other)
  Sender: FDA-Public Use
  Company Number: US-VIFOR (INTERNATIONAL) INC.-VIT-2017-13110

PATIENT
  Age: 54 Year
  Sex: Male
  Weight: 90.6 kg

DRUGS (2)
  1. CALCITRIOL. [Concomitant]
     Active Substance: CALCITRIOL
     Route: 048
  2. MIRCERA [Suspect]
     Active Substance: METHOXY POLYETHYLENE GLYCOL-EPOETIN BETA
     Indication: NEPHROGENIC ANAEMIA
     Dosage: AT 15:12
     Route: 040
     Dates: start: 20171108, end: 20171108

REACTIONS (8)
  - Feeling hot [Unknown]
  - Vomiting [Unknown]
  - Pruritus [Unknown]
  - Nausea [Unknown]
  - Loss of consciousness [Unknown]
  - Dyspnoea [Unknown]
  - Flushing [Unknown]
  - Altered state of consciousness [Unknown]

NARRATIVE: CASE EVENT DATE: 20171108
